FAERS Safety Report 8179639-6 (Version None)
Quarter: 2012Q1

REPORT INFORMATION
  Report Type: 
  Country: None (occurrence: None)
  Receive Date: 20120229
  Receipt Date: 20120229
  Transmission Date: 20120608
  Serious: Yes (Other)
  Sender: FDA-Public Use
  Company Number: None

PATIENT
  Age: 65 Year
  Sex: Male
  Weight: 68.0396 kg

DRUGS (2)
  1. HEALTHY ACCENTS MAX STRENGTH - 1000MG ANTACID TABLETS [Suspect]
     Indication: GASTRIC PH INCREASED
     Dosage: 1 X
  2. HEALTHY ACCENTS MAX STRENGTH [Suspect]

REACTIONS (2)
  - PRODUCT ODOUR ABNORMAL [None]
  - NAUSEA [None]
